FAERS Safety Report 10420242 (Version 1)
Quarter: 2014Q3

REPORT INFORMATION
  Report Type: Report from Study
  Country: US (occurrence: None)
  Receive Date: 20140804
  Receipt Date: 20140804
  Transmission Date: 20150326
  Serious: Yes (Hospitalization)
  Sender: FDA-Public Use
  Company Number: 2013US008735

PATIENT
  Age: 68 Year
  Sex: Female

DRUGS (4)
  1. BI-PAP MACHINE [Concomitant]
  2. GLASSIA [Suspect]
     Active Substance: .ALPHA.1-PROTEINASE INHIBITOR HUMAN
     Indication: ALPHA-1 ANTI-TRYPSIN DEFICIENCY
     Route: 042
     Dates: start: 20130130
  3. VENTILATOR [Concomitant]
  4. OXYGEN. [Concomitant]
     Active Substance: OXYGEN

REACTIONS (3)
  - Cardiac failure congestive [None]
  - Respiratory failure [None]
  - Pericardial effusion [None]

NARRATIVE: CASE EVENT DATE: 20130423
